FAERS Safety Report 5353457-6 (Version None)
Quarter: 2007Q2

REPORT INFORMATION
  Report Type: 
  Country: None (occurrence: None)
  Receive Date: 20070612
  Receipt Date: 20070604
  Transmission Date: 20071010
  Serious: Yes (Other)
  Sender: FDA-Public Use
  Company Number: PHEH2007US07031

PATIENT
  Age: 31 Year
  Sex: Female

DRUGS (7)
  1. ZELNORM [Suspect]
     Indication: IRRITABLE BOWEL SYNDROME
     Dosage: 6 MG, BID
     Route: 048
     Dates: end: 20070507
  2. LAMICTAL [Concomitant]
     Indication: BIPOLAR DISORDER
     Dosage: 100 MG, QD
     Dates: start: 20040521
  3. CELEXA [Concomitant]
     Indication: DEPRESSION
     Dosage: 40 MG, QD
  4. PHENTERMINE HYDROCHLORIDE [Concomitant]
     Dates: end: 20061001
  5. ADDERALL XR 10 [Concomitant]
     Indication: ATTENTION DEFICIT/HYPERACTIVITY DISORDER
     Dosage: 25 MG, QD
  6. WELLBUTRIN [Concomitant]
  7. GLYCOLAX [Concomitant]
     Indication: IRRITABLE BOWEL SYNDROME
     Dosage: UNK, QD

REACTIONS (4)
  - CONVULSION [None]
  - FALL [None]
  - HYPOAESTHESIA [None]
  - TREMOR [None]
